FAERS Safety Report 23193484 (Version 1)
Quarter: 2023Q4

REPORT INFORMATION
  Report Type: Other
  Country: US (occurrence: US)
  Receive Date: 20231116
  Receipt Date: 20231116
  Transmission Date: 20240109
  Serious: No
  Sender: FDA-Public Use
  Company Number: US-TRAVERE-2023TVT00438

PATIENT
  Age: 58 Year
  Sex: Female

DRUGS (1)
  1. FILSPARI [Suspect]
     Active Substance: SPARSENTAN
     Indication: Product used for unknown indication
     Dosage: 200 MG
     Route: 048

REACTIONS (2)
  - Musculoskeletal chest pain [Unknown]
  - Dyspepsia [None]
